FAERS Safety Report 25154108 (Version 1)
Quarter: 2025Q2

REPORT INFORMATION
  Report Type: Spontaneous
  Country: FR (occurrence: FR)
  Receive Date: 20250403
  Receipt Date: 20250403
  Transmission Date: 20250717
  Serious: Yes (Death, Hospitalization, Other)
  Sender: CHEPLAPHARM
  Company Number: None

PATIENT
  Age: 29 Year
  Sex: Female

DRUGS (4)
  1. QUETIAPINE [Suspect]
     Active Substance: QUETIAPINE
  2. MORPHINE [Suspect]
     Active Substance: MORPHINE
  3. ALPRAZOLAM [Suspect]
     Active Substance: ALPRAZOLAM
  4. MIRTAZAPINE [Suspect]
     Active Substance: MIRTAZAPINE

REACTIONS (3)
  - Drug use disorder [Fatal]
  - Cardio-respiratory arrest [Fatal]
  - Hyperkalaemia [Unknown]

NARRATIVE: CASE EVENT DATE: 20240918
